FAERS Safety Report 18549552 (Version 1)
Quarter: 2020Q4

REPORT INFORMATION
  Report Type: Spontaneous
  Country: CN (occurrence: CN)
  Receive Date: 20201126
  Receipt Date: 20201126
  Transmission Date: 20210114
  Serious: Yes (Other)
  Sender: FDA-Public Use
  Company Number: CN-009507513-2011CHN012716

PATIENT
  Age: 46 Year
  Sex: Female
  Weight: 50 kg

DRUGS (7)
  1. REMERON [Suspect]
     Active Substance: MIRTAZAPINE
     Indication: DEPRESSION
     Dosage: 15 MILLIGRAM, QD (EVERY NIGHT)
     Route: 048
     Dates: start: 20201017, end: 20201019
  2. CLONAZEPAM. [Concomitant]
     Active Substance: CLONAZEPAM
     Indication: DEPRESSION
     Dosage: 2 MILLIGRAM, QD (EVERY NIGHT)
     Route: 048
     Dates: start: 20201027, end: 20201113
  3. REMERON [Suspect]
     Active Substance: MIRTAZAPINE
     Dosage: 30 MILLIGRAM, QD (EVERY NIGHT)
     Route: 048
     Dates: start: 20201019, end: 20201026
  4. REMERON [Suspect]
     Active Substance: MIRTAZAPINE
     Dosage: 45 MILLIGRAM, QN (EVERY NIGHT)
     Route: 048
     Dates: start: 20201026, end: 20201113
  5. SEROQUEL [Suspect]
     Active Substance: QUETIAPINE FUMARATE
     Indication: DEPRESSION
     Dosage: 25 MILLIGRAM, QD (EVERY NIGHT)
     Route: 048
     Dates: start: 20201027, end: 20201102
  6. ALPRAZOLAM. [Concomitant]
     Active Substance: ALPRAZOLAM
     Indication: DEPRESSION
     Dosage: 1.2 MILLIGRAM, QD (EVERY NIGHT)
     Route: 048
     Dates: start: 20201017, end: 20201113
  7. WEN FEI [Concomitant]
     Indication: DEPRESSION
     Dosage: 3 MILLIGRAM, QD (EVERY NIGHT)
     Route: 048
     Dates: start: 20201023, end: 20201109

REACTIONS (1)
  - Lipids increased [Recovering/Resolving]

NARRATIVE: CASE EVENT DATE: 20201031
